FAERS Safety Report 7155938-1 (Version None)
Quarter: 2010Q4

REPORT INFORMATION
  Report Type: 
  Country: None (occurrence: None)
  Receive Date: 20101214
  Receipt Date: 20101206
  Transmission Date: 20110411
  Serious: Yes (Hospitalization, Other)
  Sender: FDA-Public Use
  Company Number: DE-SANOFI-AVENTIS-2010SA015786

PATIENT
  Age: 60 Year
  Sex: Male
  Weight: 69 kg

DRUGS (11)
  1. MULTAQ [Suspect]
     Indication: ATRIAL FIBRILLATION
     Route: 048
     Dates: start: 20100217, end: 20100308
  2. METOPROLOL SUCCINATE [Concomitant]
     Dosage: DOSAGE: 2-0-1
     Route: 048
  3. DELIX [Concomitant]
     Dosage: DOSAGE: 1-0-0
     Route: 048
  4. HYDROCHLOROTHIAZIDE [Concomitant]
     Dosage: DOSAGE: 1/2-0-0
     Route: 048
  5. VERAPAMIL HYDROCHLORIDE [Concomitant]
     Dosage: DOSAGE: 1-1-1
     Route: 048
  6. PANTOZOL [Concomitant]
     Dosage: DOSAGE: 1-0-0
     Route: 048
  7. PHENPROCOUMON [Concomitant]
     Dosage: DOSAGE: AFTER INR
     Route: 048
  8. KLACID [Concomitant]
     Dosage: DOSAGE: 1X1
     Route: 048
  9. AMOXICILLIN [Concomitant]
     Dosage: DOSAGE: 1X1
     Route: 048
  10. SIMVASTATIN [Concomitant]
     Route: 048
     Dates: end: 20100308
  11. DIGITALIS TAB [Concomitant]
     Route: 065

REACTIONS (7)
  - ABDOMINAL PAIN [None]
  - CHOLESTASIS [None]
  - HEPATITIS TOXIC [None]
  - HEPATOMEGALY [None]
  - JAUNDICE [None]
  - PRURITUS [None]
  - PYREXIA [None]
